FAERS Safety Report 24332042 (Version 3)
Quarter: 2024Q4

REPORT INFORMATION
  Report Type: Report from Study
  Country: US (occurrence: US)
  Receive Date: 20240918
  Receipt Date: 20241011
  Transmission Date: 20250115
  Serious: Yes (Other)
  Sender: AMGEN
  Company Number: US-AMGEN-USASP2024183441

PATIENT
  Age: 38 Year
  Sex: Male

DRUGS (4)
  1. TEPEZZA [Suspect]
     Active Substance: TEPROTUMUMAB-TRBW
     Indication: Thyroid disorder
     Dosage: 990 MILLIGRAM (WEEK 0) (1 DOSE)
     Route: 042
     Dates: start: 20240505
  2. TEPEZZA [Suspect]
     Active Substance: TEPROTUMUMAB-TRBW
     Dosage: 1980 MILLIGRAM, Q3WK  (SECOND INFUSION) WEEK 3 X 7 DOSES
     Route: 042
     Dates: start: 2024
  3. TEPEZZA [Suspect]
     Active Substance: TEPROTUMUMAB-TRBW
     Dosage: 1980 MILLIGRAM, Q3WK (FIFTH INFUSION)
     Route: 042
     Dates: start: 2024
  4. TEPEZZA [Suspect]
     Active Substance: TEPROTUMUMAB-TRBW
     Dosage: 1980 MILLIGRAM, Q3WK (FINAL INFUSION) WEEK 3 X 7 DOSES
     Route: 042
     Dates: start: 20240930, end: 20240930

REACTIONS (3)
  - Deafness transitory [Recovering/Resolving]
  - Snoring [Unknown]
  - Off label use [Unknown]

NARRATIVE: CASE EVENT DATE: 20240101
